FAERS Safety Report 4709187-4 (Version None)
Quarter: 2005Q3

REPORT INFORMATION
  Report Type: 
  Country: None (occurrence: None)
  Receive Date: 20050705
  Receipt Date: 20050622
  Transmission Date: 20060218
  Serious: Yes (Other)
  Sender: FDA-Public Use
  Company Number: 215564

PATIENT
  Age: 7 Year
  Sex: Male

DRUGS (2)
  1. NUTROPIN AQ [Suspect]
     Indication: CRANIOPHARYNGIOMA
     Dosage: 0.9 MG, UNK, SUBCUTANEOUS
     Route: 058
     Dates: start: 20040429, end: 20050512
  2. LEVOXYL [Concomitant]

REACTIONS (2)
  - CRANIOPHARYNGIOMA [None]
  - NEOPLASM PROGRESSION [None]
